FAERS Safety Report 8340295-5 (Version None)
Quarter: 2012Q2

REPORT INFORMATION
  Report Type: 
  Country: None (occurrence: None)
  Receive Date: 20120502
  Receipt Date: 20120502
  Transmission Date: 20120825
  Serious: No
  Sender: FDA-Public Use
  Company Number: None

PATIENT
  Age: 45 Year
  Sex: Female
  Weight: 68.0396 kg

DRUGS (1)
  1. ESCITALOPRAM [Suspect]
     Indication: BIPOLAR I DISORDER
     Dosage: 20 MG QD PO @3/15/12 X 4/7
     Route: 048
     Dates: start: 20120315

REACTIONS (1)
  - NO THERAPEUTIC RESPONSE [None]
